FAERS Safety Report 14386342 (Version 2)
Quarter: 2018Q3

REPORT INFORMATION
  Report Type: Spontaneous
  Country: US (occurrence: US)
  Receive Date: 20180115
  Receipt Date: 20180921
  Transmission Date: 20181010
  Serious: Yes (Other)
  Sender: FDA-Public Use
  Company Number: US-SA-2017SA137737

PATIENT
  Age: 59 Year
  Sex: Female

DRUGS (12)
  1. TAXOTERE [Suspect]
     Active Substance: DOCETAXEL
     Indication: BREAST CANCER FEMALE
     Dosage: 134 MG,Q3W
     Route: 042
     Dates: start: 20120613, end: 20120613
  2. DICYCLOVERINE [Concomitant]
     Active Substance: DICYCLOMINE HYDROCHLORIDE
     Dosage: UNK UNK,UNK
     Route: 065
     Dates: start: 2010
  3. HERCEPTIN [Concomitant]
     Active Substance: TRASTUZUMAB
  4. PARAPLATIN [Concomitant]
     Active Substance: CARBOPLATIN
     Dosage: UNK
  5. PARAPLATIN [Concomitant]
     Active Substance: CARBOPLATIN
     Dosage: UNK
  6. LOVASTATIN. [Concomitant]
     Active Substance: LOVASTATIN
     Dosage: UNK UNK,UNK
     Route: 065
     Dates: start: 2010
  7. FENOFIBRATE. [Concomitant]
     Active Substance: FENOFIBRATE
     Dosage: UNK UNK,UNK
     Route: 065
     Dates: start: 2010
  8. HERCEPTIN [Concomitant]
     Active Substance: TRASTUZUMAB
  9. TAXOTERE [Suspect]
     Active Substance: DOCETAXEL
     Dosage: 134 MG,Q3W
     Route: 042
     Dates: start: 20120927, end: 20120927
  10. SERTRALINE [Concomitant]
     Active Substance: SERTRALINE HYDROCHLORIDE
     Dosage: UNK UNK,UNK
     Route: 065
     Dates: start: 20100101
  11. HYDROCHLOROTHIAZIDE. [Concomitant]
     Active Substance: HYDROCHLOROTHIAZIDE
     Dosage: UNK UNK,UNK
     Route: 065
     Dates: start: 20100101
  12. LEVOTHYROXINE. [Concomitant]
     Active Substance: LEVOTHYROXINE
     Dosage: UNK UNK,UNK
     Route: 065
     Dates: start: 2010

REACTIONS (5)
  - Emotional distress [Unknown]
  - Psychological trauma [Unknown]
  - Alopecia [Recovering/Resolving]
  - Anxiety [Unknown]
  - Pain [Unknown]

NARRATIVE: CASE EVENT DATE: 20120801
